FAERS Safety Report 14378794 (Version 1)
Quarter: 2018Q1

REPORT INFORMATION
  Report Type: Spontaneous
  Country: US (occurrence: US)
  Receive Date: 20180112
  Receipt Date: 20180112
  Transmission Date: 20180509
  Serious: No
  Sender: FDA-Public Use
  Company Number: US-LEO PHARMA-306875

PATIENT
  Sex: Male

DRUGS (1)
  1. PICATO [Suspect]
     Active Substance: INGENOL MEBUTATE
     Indication: PRODUCT USED FOR UNKNOWN INDICATION
     Route: 061
     Dates: start: 20180101, end: 20180103

REACTIONS (6)
  - Application site dryness [Unknown]
  - Application site discolouration [Unknown]
  - Application site exfoliation [Unknown]
  - Application site necrosis [Unknown]
  - Application site swelling [Unknown]
  - Application site erythema [Unknown]
